FAERS Safety Report 13271150 (Version 1)
Quarter: 2017Q1

REPORT INFORMATION
  Report Type: Spontaneous
  Country: DK (occurrence: DK)
  Receive Date: 20170226
  Receipt Date: 20170226
  Transmission Date: 20170428
  Serious: Yes (Hospitalization)
  Sender: FDA-Public Use
  Company Number: DK-MYLANLABS-2017M1010886

PATIENT

DRUGS (1)
  1. GABAMED [Suspect]
     Active Substance: GABAPENTIN
     Indication: MUSCULOSKELETAL PAIN
     Dosage: DOSIS: 2 KAPSLER TIL NATTEN.STYRKE: 300 MG.
     Route: 048
     Dates: start: 20160629, end: 20160629

REACTIONS (17)
  - Fall [Recovered/Resolved]
  - Laboratory test abnormal [None]
  - Cognitive disorder [None]
  - Pyrexia [None]
  - Musculoskeletal stiffness [None]
  - Seizure [None]
  - Cardiac arrest [None]
  - Gait disturbance [None]
  - Chest pain [None]
  - Headache [Unknown]
  - Respiratory arrest [None]
  - Muscle spasms [Recovered/Resolved]
  - Heart rate increased [None]
  - Chest discomfort [None]
  - Toxicity to various agents [None]
  - Fatigue [None]
  - Somnolence [None]

NARRATIVE: CASE EVENT DATE: 20160630
